FAERS Safety Report 16089170 (Version 1)
Quarter: 2019Q1

REPORT INFORMATION
  Report Type: Spontaneous
  Country: US (occurrence: US)
  Receive Date: 20190215
  Receipt Date: 20190215
  Transmission Date: 20190418
  Serious: Yes (Hospitalization)
  Sender: FDA-Public Use
  Company Number: None

PATIENT
  Age: 15 Year
  Sex: Female

DRUGS (6)
  1. NEB SLN [Concomitant]
  2. FLUTICASONE. [Concomitant]
     Active Substance: FLUTICASONE
  3. VENTOLIN [Suspect]
     Active Substance: ALBUTEROL SULFATE
  4. AZITHROMYCIN ANHYDROUS. [Concomitant]
     Active Substance: AZITHROMYCIN ANHYDROUS
  5. CREON [Suspect]
     Active Substance: PANCRELIPASE AMYLASE\PANCRELIPASE LIPASE\PANCRELIPASE PROTEASE
     Indication: CYSTIC FIBROSIS
     Dosage: ?          OTHER FREQUENCY:W/MEALS ; ANS SNACKS?
     Route: 048
     Dates: start: 20131113
  6. ALBUTEROL. [Concomitant]
     Active Substance: ALBUTEROL

REACTIONS (2)
  - Condition aggravated [None]
  - Cystic fibrosis [None]

NARRATIVE: CASE EVENT DATE: 20190212
